FAERS Safety Report 10142973 (Version 1)
Quarter: 2014Q2

REPORT INFORMATION
  Report Type: Spontaneous
  Country: US (occurrence: None)
  Receive Date: 20140428
  Receipt Date: 20140428
  Transmission Date: 20141212
  Serious: No
  Sender: FDA-Public Use
  Company Number: None

PATIENT
  Sex: Female
  Weight: 125 kg

DRUGS (1)
  1. METHOTREXATE [Suspect]
     Indication: POLYARTHRITIS
     Route: 030
     Dates: start: 20131002

REACTIONS (4)
  - Menstruation irregular [None]
  - Nausea [None]
  - Irritability [None]
  - Myalgia [None]
